FAERS Safety Report 17961319 (Version 1)
Quarter: 2020Q2

REPORT INFORMATION
  Report Type: Spontaneous
  Country: US (occurrence: US)
  Receive Date: 20200629
  Receipt Date: 20200629
  Transmission Date: 20200714
  Serious: No
  Sender: FDA-Public Use
  Company Number: US-ROCHE-2350027

PATIENT
  Sex: Female

DRUGS (1)
  1. XELODA [Suspect]
     Active Substance: CAPECITABINE
     Indication: PRODUCT USED FOR UNKNOWN INDICATION
     Route: 048

REACTIONS (9)
  - Taste disorder [Unknown]
  - Mood altered [Unknown]
  - Night sweats [Unknown]
  - Axillary pain [Unknown]
  - Hypotension [Unknown]
  - Decreased appetite [Unknown]
  - Procedural pain [Unknown]
  - Weight decreased [Unknown]
  - Pruritus [Unknown]
